FAERS Safety Report 10272394 (Version 1)
Quarter: 2014Q1

REPORT INFORMATION
  Report Type: Spontaneous
  Country: US (occurrence: None)
  Receive Date: 20140306
  Receipt Date: 20140306
  Transmission Date: 20141002
  Serious: Yes (Other)
  Sender: FDA-Public Use
  Company Number: 163-21880-13044228

PATIENT
  Age: 81 Year
  Sex: Male
  Weight: 83.92 kg

DRUGS (17)
  1. REVLIMID (LENALIDOMIDE) (15 MILLIGRAM, CAPSULES) [Suspect]
     Indication: PLASMA CELL MYELOMA
     Route: 048
     Dates: start: 201304
  2. DEXAMETHASONE (DEXAMETHASONE) (UNKNOWN) [Concomitant]
  3. LEVOTHROID (LEVOTHYROXINE SODIUM) (UNKNOWN) [Concomitant]
  4. METOPROLOL SUCCINATE (METOPROLOL SUCCINATE) (UNKNOWN) [Concomitant]
  5. PRENATAL VITAMINS (PRENATAL VITAMINS) (UNKNOWN) [Concomitant]
  6. SERTRALINE HCL (SERTRALINE HYDROCHLORIDE) (UNKNOWN) [Concomitant]
  7. TAMSULOSIN HCL (TAMSULOSIN HYDROCHLORIDE) (UNKNOWN) [Concomitant]
  8. IRON (IRON) (UNKNOWN) [Concomitant]
  9. ASPIRIN (ACETYLSALICYLIC ACID) (ENTERIC-COATED TABLET) [Concomitant]
  10. LISINOPRIL (LISINOPRIL) (UNKNOWN) [Concomitant]
  11. OMEPRAZOLE (OMEPRAZOLE) (TABLETS) [Concomitant]
  12. PROBIOTIC WITH PREBIOTIC (BACILLUS COAGULANS) (UNKNOWN) [Concomitant]
  13. PROCHLORPERAZINE MALEATE (PROCHLORPERAZINE MALEATE) (TABLETS) [Concomitant]
  14. XANAX (ALPRAZOLAM) (TABLETS) [Concomitant]
  15. ZOLOFT (SERTRALINE HYDROCHLORIDE) (TABLETS) [Concomitant]
  16. VENOFER (SACCHARATED IRON OXIDE) (UNKNOWN) [Concomitant]
  17. VELCADE (BORTEZOMIB) (UNKNOWN) [Concomitant]

REACTIONS (1)
  - Acne [None]
